FAERS Safety Report 5711508-0 (Version None)
Quarter: 2008Q2

REPORT INFORMATION
  Report Type: 
  Country: None (occurrence: None)
  Receive Date: 20080418
  Receipt Date: 20080418
  Transmission Date: 20081010
  Serious: Yes (Hospitalization)
  Sender: FDA-Public Use
  Company Number: None

PATIENT
  Age: 80 Year
  Sex: Male
  Weight: 79.6 kg

DRUGS (1)
  1. ISOSORBIDE DINITRATE [Suspect]
     Indication: ANGINA PECTORIS
     Dosage: 5MG TID PO
     Route: 048
     Dates: start: 20050708, end: 20080402

REACTIONS (2)
  - DIZZINESS [None]
  - HYPOTENSION [None]
